FAERS Safety Report 8020608-4 (Version None)
Quarter: 2012Q1

REPORT INFORMATION
  Report Type: 
  Country: None (occurrence: None)
  Receive Date: 20120103
  Receipt Date: 20111222
  Transmission Date: 20120608
  Serious: Yes (Hospitalization)
  Sender: FDA-Public Use
  Company Number: AU-ASTRAZENECA-2011SE77573

PATIENT
  Age: 17 Year
  Sex: Female

DRUGS (3)
  1. DIAZEPAM [Concomitant]
  2. NEXIUM [Suspect]
     Dosage: 2 DOSES
     Route: 048
     Dates: start: 20111114, end: 20111115
  3. METOCLOPRAMIDE HCL [Concomitant]

REACTIONS (3)
  - CHEILITIS [None]
  - RASH [None]
  - SWOLLEN TONGUE [None]
